FAERS Safety Report 21558779 (Version 2)
Quarter: 2022Q4

REPORT INFORMATION
  Report Type: Spontaneous
  Country: TR (occurrence: None)
  Receive Date: 20221107
  Receipt Date: 20221128
  Transmission Date: 20230113
  Serious: Yes (Other)
  Sender: FDA-Public Use
  Company Number: TR-ROCHE-3212122

PATIENT
  Age: 66 Year
  Sex: Male
  Weight: 53 kg

DRUGS (1)
  1. RITUXIMAB [Suspect]
     Active Substance: RITUXIMAB
     Indication: Mantle cell lymphoma
     Route: 041
     Dates: start: 20210702, end: 20220526

REACTIONS (5)
  - Erythema [Unknown]
  - Skin oedema [Unknown]
  - Oedema peripheral [Unknown]
  - Palmar erythema [Unknown]
  - Psoriasis [Unknown]
